FAERS Safety Report 6067423-9 (Version None)
Quarter: 2009Q1

REPORT INFORMATION
  Report Type: 
  Country: None (occurrence: None)
  Receive Date: 20090204
  Receipt Date: 20090204
  Transmission Date: 20090719
  Serious: Yes (Hospitalization, Other)
  Sender: FDA-Public Use
  Company Number: None

PATIENT
  Sex: Male
  Weight: 65.4 kg

DRUGS (8)
  1. TEMOZOLOMIDE [Suspect]
     Indication: ACUTE MYELOID LEUKAEMIA
     Dosage: 100MG/M2 QD PO 200MG/M2 (INDUCTION QD PO
     Route: 048
     Dates: start: 20090108, end: 20090121
  2. TEMOZOLOMIDE [Suspect]
     Indication: ACUTE MYELOID LEUKAEMIA
     Dosage: 100MG/M2 QD PO 200MG/M2 (INDUCTION QD PO
     Route: 048
     Dates: start: 20090122, end: 20090126
  3. ONDANSETRON [Concomitant]
  4. TRAMADOL [Concomitant]
  5. OMEPRAZOLE [Concomitant]
  6. CETIRIZINE [Concomitant]
  7. PROCHLORPERAZINE MALEATE [Concomitant]
  8. ALLOPURINOL [Concomitant]

REACTIONS (11)
  - AMNESIA [None]
  - ASTHENIA [None]
  - BLOOD PRESSURE ORTHOSTATIC DECREASED [None]
  - CARDIAC MURMUR [None]
  - CONTUSION [None]
  - FALL [None]
  - FATIGUE [None]
  - GAIT DISTURBANCE [None]
  - INJURY [None]
  - PITTING OEDEMA [None]
  - SPEECH DISORDER [None]
